FAERS Safety Report 5409757-4 (Version None)
Quarter: 2007Q3

REPORT INFORMATION
  Report Type: 
  Country: None (occurrence: None)
  Receive Date: 20070809
  Receipt Date: 20070731
  Transmission Date: 20080115
  Serious: Yes (Hospitalization)
  Sender: FDA-Public Use
  Company Number: B0482565A

PATIENT
  Age: 36 Year
  Sex: Female

DRUGS (3)
  1. LITHIUM CARBONATE [Suspect]
     Indication: DRUG USE FOR UNKNOWN INDICATION
     Route: 042
  2. CLOZARIL [Suspect]
     Indication: SCHIZOPHRENIA
     Dates: start: 20070504, end: 20070708
  3. EPILIM [Concomitant]
     Indication: EPILEPSY

REACTIONS (8)
  - BLOOD SODIUM INCREASED [None]
  - CELLULITIS [None]
  - CONVULSION [None]
  - DIABETES INSIPIDUS [None]
  - MENTAL STATUS CHANGES [None]
  - RED BLOOD CELL COUNT DECREASED [None]
  - STATUS EPILEPTICUS [None]
  - THERAPEUTIC AGENT TOXICITY [None]
